FAERS Safety Report 10057472 (Version 2)
Quarter: 2014Q2

REPORT INFORMATION
  Report Type: Report from Study
  Country: CA (occurrence: CA)
  Receive Date: 20140403
  Receipt Date: 20140403
  Transmission Date: 20141212
  Serious: Yes (Hospitalization)
  Sender: FDA-Public Use
  Company Number: CA-ABBVIE-13P-028-1041301-00

PATIENT
  Age: 34 Year
  Sex: Female
  Weight: 56.75 kg

DRUGS (12)
  1. HUMIRA [Suspect]
     Indication: CROHN^S DISEASE
     Route: 058
     Dates: start: 20070227, end: 201301
  2. HUMIRA [Suspect]
     Route: 058
     Dates: start: 201301
  3. PREDNISONE [Suspect]
     Indication: ABDOMINAL PAIN
     Route: 048
     Dates: start: 20130425
  4. PREDNISONE [Suspect]
     Indication: HAEMATOCHEZIA
     Route: 048
  5. PREDNISONE [Suspect]
     Indication: RECTAL HAEMORRHAGE
  6. PREDNISONE [Suspect]
  7. PREDNISONE [Suspect]
  8. PREDNISONE [Suspect]
  9. TYLENOL [Suspect]
     Indication: MIGRAINE
  10. ADVIL [Suspect]
     Indication: MIGRAINE
  11. PREDNISONE [Suspect]
     Indication: MIGRAINE
     Dosage: INCREASED DOSE
  12. AZATHIOPRINE [Concomitant]
     Indication: CROHN^S DISEASE
     Route: 048

REACTIONS (22)
  - Migraine [Recovered/Resolved]
  - Nausea [Unknown]
  - Headache [Not Recovered/Not Resolved]
  - Haematochezia [Not Recovered/Not Resolved]
  - Migraine [Not Recovered/Not Resolved]
  - Defaecation urgency [Not Recovered/Not Resolved]
  - Anxiety [Unknown]
  - Insomnia [Not Recovered/Not Resolved]
  - Anxiety [Not Recovered/Not Resolved]
  - Anxiety [Not Recovered/Not Resolved]
  - Grief reaction [Not Recovered/Not Resolved]
  - Dizziness [Not Recovered/Not Resolved]
  - Headache [Not Recovered/Not Resolved]
  - Abdominal pain lower [Not Recovered/Not Resolved]
  - Drug ineffective [Unknown]
  - Rectal haemorrhage [Not Recovered/Not Resolved]
  - Drug effect incomplete [Unknown]
  - Headache [Not Recovered/Not Resolved]
  - Drug ineffective [Unknown]
  - Drug ineffective [Unknown]
  - Drug ineffective [Unknown]
  - Drug ineffective [Unknown]
